FAERS Safety Report 9184928 (Version 1)
Quarter: 2013Q1

REPORT INFORMATION
  Report Type: Spontaneous
  Country: US (occurrence: US)
  Receive Date: 20130325
  Receipt Date: 20130325
  Transmission Date: 20140127
  Serious: Yes (Other)
  Sender: FDA-Public Use
  Company Number: US-BRISTOL-MYERS SQUIBB COMPANY-16537300

PATIENT
  Age: 70 Year
  Sex: Male

DRUGS (4)
  1. ERBITUX [Suspect]
     Indication: COLON CANCER
     Dosage: MAINTENANCE,LOADING DOSE FOR 2 HOURS,NO OF TREATMENTS : 13,NEXT TREATMENT ON 09NOV11
     Dates: start: 20111102
  2. LEUCOVORIN [Concomitant]
  3. CAMPTOSAR [Concomitant]
     Dosage: INFUSED OVER 2 HOURS
  4. 5-FLUOROURACIL [Concomitant]
     Dosage: IN A PUMP FOR 46 HOURS

REACTIONS (3)
  - Rash generalised [Unknown]
  - Skin disorder [Unknown]
  - Haemorrhage [Unknown]
